FAERS Safety Report 5452908-6 (Version None)
Quarter: 2007Q3

REPORT INFORMATION
  Report Type: 
  Country: None (occurrence: None)
  Receive Date: 20070914
  Receipt Date: 20070907
  Transmission Date: 20080115
  Serious: Yes (Life-Threatening, Hospitalization)
  Sender: FDA-Public Use
  Company Number: B0485924A

PATIENT
  Age: 84 Year
  Sex: Male
  Weight: 54 kg

DRUGS (10)
  1. AVANDAMET [Suspect]
     Indication: ACUTE MYOCARDIAL INFARCTION
     Route: 048
     Dates: start: 20070813, end: 20070821
  2. PERINDOPRIL ERBUMINE [Concomitant]
     Indication: PAIN
     Dosage: 5MG PER DAY
     Route: 065
     Dates: start: 20070822
  3. ALENDRONATE SODIUM [Concomitant]
     Dosage: 25MG PER DAY
     Route: 065
  4. ASPIRIN [Concomitant]
     Dosage: 100MG PER DAY
     Route: 065
  5. CALCIUM [Concomitant]
     Dosage: 600MG PER DAY
     Route: 065
  6. DONEPEZIL HCL [Concomitant]
     Dosage: 5MG PER DAY
     Route: 065
  7. GLIMEPIRIDE [Concomitant]
     Dosage: 6MG PER DAY
     Route: 065
  8. ISOSORBIDE MONONITRATE [Concomitant]
     Dosage: 120MG PER DAY
     Route: 065
  9. PANTOPRAZOLE SODIUM [Concomitant]
     Route: 065
  10. SIMVASTATIN [Concomitant]
     Route: 065

REACTIONS (2)
  - CHEST PAIN [None]
  - MYOCARDIAL INFARCTION [None]
